FAERS Safety Report 12552069 (Version 1)
Quarter: 2016Q3

REPORT INFORMATION
  Report Type: Spontaneous
  Country: US (occurrence: US)
  Receive Date: 20160713
  Receipt Date: 20160713
  Transmission Date: 20161109
  Serious: No
  Sender: FDA-Public Use
  Company Number: US-BEH-2016070615

PATIENT
  Age: 53 Year
  Sex: Female
  Weight: 96.6 kg

DRUGS (24)
  1. LIDOCAINE/PRILOCAINE [Concomitant]
     Active Substance: LIDOCAINE\PRILOCAINE
  2. BACTRIM [Concomitant]
     Active Substance: SULFAMETHOXAZOLE\TRIMETHOPRIM
  3. TAMIFLU [Concomitant]
     Active Substance: OSELTAMIVIR PHOSPHATE
  4. ONDANSETRON [Concomitant]
     Active Substance: ONDANSETRON
  5. DIOVAN [Concomitant]
     Active Substance: VALSARTAN
  6. DIPHENHYDRAMINE. [Concomitant]
     Active Substance: DIPHENHYDRAMINE
  7. EPIPEN [Concomitant]
     Active Substance: EPINEPHRINE
  8. LEVAQUIN [Concomitant]
     Active Substance: LEVOFLOXACIN
  9. ACETAMINOPHEN. [Concomitant]
     Active Substance: ACETAMINOPHEN
  10. NEXIUM [Concomitant]
     Active Substance: ESOMEPRAZOLE MAGNESIUM
  11. NYSTATIN. [Concomitant]
     Active Substance: NYSTATIN
  12. ZETIA [Concomitant]
     Active Substance: EZETIMIBE
  13. NASONEX [Concomitant]
     Active Substance: MOMETASONE FUROATE
  14. BYSTOLIC [Concomitant]
     Active Substance: NEBIVOLOL HYDROCHLORIDE
  15. LMX                                /00033401/ [Concomitant]
  16. DULERA [Concomitant]
     Active Substance: FORMOTEROL FUMARATE DIHYDRATE\MOMETASONE FUROATE
  17. AUGMENTIN [Concomitant]
     Active Substance: AMOXICILLIN\CLAVULANATE POTASSIUM
  18. CLINDAMYCIN [Concomitant]
     Active Substance: CLINDAMYCIN\CLINDAMYCIN PHOSPHATE
  19. HIZENTRA [Suspect]
     Active Substance: HUMAN IMMUNOGLOBULIN G
     Indication: SELECTIVE IGG SUBCLASS DEFICIENCY
     Dosage: 72 G, AS DIRECTED
     Route: 058
  20. PREDNISONE. [Concomitant]
     Active Substance: PREDNISONE
  21. METFORMIN [Concomitant]
     Active Substance: METFORMIN HYDROCHLORIDE
  22. SINGULAIR [Concomitant]
     Active Substance: MONTELUKAST SODIUM
  23. CLONAZEPAM. [Concomitant]
     Active Substance: CLONAZEPAM
  24. ALBUTEROL                          /00139501/ [Concomitant]
     Active Substance: ALBUTEROL

REACTIONS (2)
  - Nausea [Unknown]
  - Diarrhoea [Unknown]

NARRATIVE: CASE EVENT DATE: 20160320
